FAERS Safety Report 14149343 (Version 1)
Quarter: 2017Q4

REPORT INFORMATION
  Report Type: Spontaneous
  Country: GB (occurrence: GB)
  Receive Date: 20171101
  Receipt Date: 20171101
  Transmission Date: 20180321
  Serious: Yes (Other)
  Sender: FDA-Public Use
  Company Number: GB-MYLANLABS-2017M1067873

PATIENT
  Age: 85 Year
  Sex: Male
  Weight: 80 kg

DRUGS (23)
  1. SERETIDE [Concomitant]
     Active Substance: FLUTICASONE PROPIONATE\SALMETEROL XINAFOATE
     Route: 055
     Dates: start: 20170309
  2. AMOXICILLIN. [Concomitant]
     Active Substance: AMOXICILLIN
     Indication: LOWER RESPIRATORY TRACT INFECTION
     Dosage: AS PER SELF MANAGE PLAN
     Dates: start: 20170309
  3. FERROUS SULFATE. [Concomitant]
     Active Substance: FERROUS SULFATE
     Dates: start: 20170928, end: 20171001
  4. FINASTERIDE. [Concomitant]
     Active Substance: FINASTERIDE
     Dates: start: 20170327
  5. NAPROXEN. [Concomitant]
     Active Substance: NAPROXEN
     Dates: start: 20170928, end: 20170928
  6. OMEPRAZOLE. [Concomitant]
     Active Substance: OMEPRAZOLE
     Dates: start: 20170928, end: 20170928
  7. SALBUTAMOL [Concomitant]
     Active Substance: ALBUTEROL
     Route: 055
     Dates: start: 20160225
  8. TAMSULOSIN HYDROCHLORIDE. [Concomitant]
     Active Substance: TAMSULOSIN HYDROCHLORIDE
     Dates: start: 20170309
  9. TIOTROPIUM [Concomitant]
     Active Substance: TIOTROPIUM
     Route: 055
     Dates: start: 20170309
  10. ASPIRIN. [Concomitant]
     Active Substance: ASPIRIN
     Dosage: AFTER FOOD
     Dates: start: 20170120
  11. SODIUM CHLORIDE. [Concomitant]
     Active Substance: SODIUM CHLORIDE
     Dosage: USE AS DIRECTED
     Dates: start: 20170719, end: 20170720
  12. FOLIC ACID. [Concomitant]
     Active Substance: FOLIC ACID
     Dosage: EVERY MORNING
     Dates: start: 20170309
  13. BISOPROLOL [Concomitant]
     Active Substance: BISOPROLOL
     Dates: start: 20170309
  14. HYDROXOCOBALAMIN [Concomitant]
     Active Substance: HYDROXOCOBALAMIN
     Dosage: USE AS DIRECTED
     Dates: start: 20170727
  15. CIPROFLOXACIN. [Suspect]
     Active Substance: CIPROFLOXACIN
     Indication: PRODUCT USED FOR UNKNOWN INDICATION
     Dates: start: 20171010
  16. COTRIMOXAZOLE [Concomitant]
     Active Substance: SULFAMETHOXAZOLE\TRIMETHOPRIM
     Dates: start: 20170928, end: 20171005
  17. DOXYCYCLINE. [Concomitant]
     Active Substance: DOXYCYCLINE
     Dosage: TWO NOW THEN ONE DAILY
     Dates: start: 20170906, end: 20170913
  18. LANSOPRAZOLE. [Concomitant]
     Active Substance: LANSOPRAZOLE
     Dates: start: 20170309
  19. AMOROLFINE [Concomitant]
     Active Substance: AMOROLFINE
     Dosage: APPLY AS DIRECTED
     Dates: start: 20170829
  20. COLECALCIFEROL [Concomitant]
     Active Substance: CHOLECALCIFEROL
     Dates: start: 20170309
  21. FUROSEMIDE. [Concomitant]
     Active Substance: FUROSEMIDE
     Indication: DYSPNOEA
     Dates: start: 20170309
  22. IPRATROPIUM BROMIDE. [Concomitant]
     Active Substance: IPRATROPIUM BROMIDE
     Dosage: USE AS DIRECTED
     Dates: start: 20170724, end: 20170725
  23. LEVOTHYROXINE. [Concomitant]
     Active Substance: LEVOTHYROXINE
     Dosage: EACH MORNING
     Dates: start: 20170120

REACTIONS (1)
  - Lip blister [Recovered/Resolved]

NARRATIVE: CASE EVENT DATE: 20171010
